FAERS Safety Report 25089192 (Version 1)
Quarter: 2025Q1

REPORT INFORMATION
  Report Type: Spontaneous
  Country: US (occurrence: None)
  Receive Date: 20250317
  Receipt Date: 20250317
  Transmission Date: 20250408
  Serious: Yes (Life-Threatening, Hospitalization)
  Sender: FDA-CTU
  Company Number: None

PATIENT
  Age: 55 Year
  Sex: Female

DRUGS (2)
  1. CEFAZOLIN SODIUM PENTAHYDRATE [Suspect]
     Active Substance: CEFAZOLIN SODIUM PENTAHYDRATE
     Indication: Staphylococcal sepsis
  2. CEFAZOLIN SODIUM PENTAHYDRATE [Suspect]
     Active Substance: CEFAZOLIN SODIUM PENTAHYDRATE
     Indication: Endocarditis bacterial

REACTIONS (2)
  - Neutropenia [None]
  - Alcoholism [None]

NARRATIVE: CASE EVENT DATE: 20241113
